FAERS Safety Report 17563285 (Version 1)
Quarter: 2020Q1

REPORT INFORMATION
  Report Type: Spontaneous
  Country: US (occurrence: US)
  Receive Date: 20200319
  Receipt Date: 20200319
  Transmission Date: 20200409
  Serious: Yes (Other)
  Sender: FDA-Public Use
  Company Number: US-ELI_LILLY_AND_COMPANY-US202003007611

PATIENT
  Age: 30 Year
  Sex: Female

DRUGS (1)
  1. REYVOW [Suspect]
     Active Substance: LASMIDITAN
     Indication: MIGRAINE
     Dosage: 100 MG, UNKNOWN
     Route: 048
     Dates: start: 20200312, end: 20200313

REACTIONS (22)
  - Feeling abnormal [Recovered/Resolved]
  - Serotonin syndrome [Unknown]
  - Memory impairment [Recovered/Resolved]
  - Visual impairment [Recovered/Resolved]
  - Thinking abnormal [Recovered/Resolved]
  - Feeling abnormal [Not Recovered/Not Resolved]
  - Hallucination, visual [Recovered/Resolved]
  - Dysgeusia [Recovered/Resolved]
  - Reading disorder [Recovered/Resolved]
  - Palpitations [Recovered/Resolved]
  - Vomiting [Unknown]
  - Speech disorder [Recovered/Resolved]
  - Dyskinesia [Recovered/Resolved]
  - Confusional state [Not Recovered/Not Resolved]
  - Cognitive disorder [Recovered/Resolved]
  - Choking sensation [Recovered/Resolved]
  - Agitation [Recovered/Resolved]
  - Gait disturbance [Recovered/Resolved]
  - Trismus [Recovered/Resolved]
  - Tremor [Recovered/Resolved]
  - Dizziness [Recovered/Resolved]
  - Vertigo [Recovered/Resolved]

NARRATIVE: CASE EVENT DATE: 20200312
